FAERS Safety Report 9322709 (Version 1)
Quarter: 2013Q2

REPORT INFORMATION
  Report Type: Spontaneous
  Country: DK (occurrence: DK)
  Receive Date: 20130601
  Receipt Date: 20130601
  Transmission Date: 20140414
  Serious: Yes (Other)
  Sender: FDA-Public Use
  Company Number: DK-ROCHE-1230617

PATIENT
  Sex: Female

DRUGS (12)
  1. HERCEPTIN [Suspect]
     Indication: BREAST CANCER RECURRENT
     Route: 065
     Dates: start: 2011
  2. HERCEPTIN [Suspect]
     Indication: METASTASES TO LIVER
     Route: 065
  3. HERCEPTIN [Suspect]
     Indication: METASTASES TO BONE
  4. HERCEPTIN [Suspect]
     Indication: METASTASES TO LIVER
  5. XELODA [Suspect]
     Indication: METASTASES TO LIVER
     Route: 065
  6. NAVELBINE [Suspect]
     Indication: BREAST CANCER RECURRENT
     Route: 065
     Dates: start: 2011
  7. NAVELBINE [Suspect]
     Indication: METASTASES TO LIVER
  8. NAVELBINE [Suspect]
     Indication: METASTASES TO BONE
  9. ZOMETA [Suspect]
     Indication: BREAST CANCER RECURRENT
     Route: 065
     Dates: start: 2011
  10. ZOMETA [Suspect]
     Indication: METASTASES TO LIVER
  11. ZOMETA [Suspect]
     Indication: METASTASES TO BONE
  12. OXALIPLATIN [Suspect]
     Indication: METASTASES TO LIVER
     Route: 065

REACTIONS (2)
  - Metastases to liver [Unknown]
  - Metastases to bone [Unknown]
